FAERS Safety Report 24214318 (Version 2)
Quarter: 2024Q4

REPORT INFORMATION
  Report Type: Spontaneous
  Country: US (occurrence: US)
  Receive Date: 20240815
  Receipt Date: 20241209
  Transmission Date: 20250115
  Serious: Yes (Hospitalization)
  Sender: MYLAN
  Company Number: US-MYLANLABS-2024M1074777

PATIENT
  Age: 15 Month
  Sex: Female

DRUGS (1)
  1. DEXAMETHASONE [Suspect]
     Active Substance: DEXAMETHASONE
     Indication: Atrioventricular block
     Dosage: 0.3 MILLIGRAM/KILOGRAM
     Route: 065

REACTIONS (1)
  - Drug ineffective [Unknown]
